FAERS Safety Report 23898991 (Version 1)
Quarter: 2024Q2

REPORT INFORMATION
  Report Type: Report from Study
  Country: US (occurrence: US)
  Receive Date: 20240525
  Receipt Date: 20240525
  Transmission Date: 20240715
  Serious: Yes (Other)
  Sender: FDA-Public Use
  Company Number: US-ABBVIE-5772516

PATIENT
  Age: 70 Year
  Sex: Male

DRUGS (1)
  1. RINVOQ [Suspect]
     Active Substance: UPADACITINIB
     Indication: Dermatitis atopic
     Route: 048
     Dates: start: 20230407

REACTIONS (3)
  - Basal cell carcinoma [Not Recovered/Not Resolved]
  - Skin disorder [Not Recovered/Not Resolved]
  - Precancerous condition [Unknown]

NARRATIVE: CASE EVENT DATE: 20230407
